FAERS Safety Report 16995531 (Version 1)
Quarter: 2019Q4

REPORT INFORMATION
  Report Type: Spontaneous
  Country: CA (occurrence: CA)
  Receive Date: 20191105
  Receipt Date: 20191105
  Transmission Date: 20200122
  Serious: Yes (Death)
  Sender: FDA-Public Use
  Company Number: CA-REGENERON PHARMACEUTICALS, INC.-2019-64236

PATIENT

DRUGS (1)
  1. EYLEA [Suspect]
     Active Substance: AFLIBERCEPT
     Indication: NEOVASCULARISATION
     Dosage: 2 MG, EVERY 10 WEEKS
     Route: 031

REACTIONS (12)
  - Neck pain [Fatal]
  - Vertigo [Fatal]
  - Endotracheal intubation [Fatal]
  - Cerebellar stroke [Fatal]
  - Hydrocephalus [Fatal]
  - Loss of consciousness [Fatal]
  - Basilar artery thrombosis [Fatal]
  - Lateral medullary syndrome [Fatal]
  - Nausea [Fatal]
  - Dizziness [Fatal]
  - Hypertension [Fatal]
  - Vertebral artery dissection [Fatal]
